FAERS Safety Report 5136169-3 (Version None)
Quarter: 2006Q4

REPORT INFORMATION
  Report Type: 
  Country: None (occurrence: None)
  Receive Date: 20061027
  Receipt Date: 20060904
  Transmission Date: 20070319
  Serious: Yes (Death, Hospitalization, Other)
  Sender: FDA-Public Use
  Company Number: JP-PURDUE-MAG_2006_0000484

PATIENT
  Age: 69 Year
  Sex: Male

DRUGS (9)
  1. OXYCODONE HCL [Suspect]
     Indication: CANCER PAIN
     Dosage: 40 MG, DAILY
     Route: 048
     Dates: start: 20060825, end: 20060828
  2. OXYCODONE HCL [Suspect]
     Dosage: 20 MG, DAILY
     Route: 048
     Dates: start: 20060718, end: 20060724
  3. BETAMETHASONE SODIUM PHOSPHATE [Suspect]
     Indication: PHARYNGEAL CANCER STAGE UNSPECIFIED
     Dosage: 1 MG, DAILY
     Route: 048
     Dates: start: 20060824, end: 20060828
  4. BETAMETHASONE SODIUM PHOSPHATE [Suspect]
     Dosage: 2 MG, DAILY
     Route: 048
     Dates: start: 20060829, end: 20060829
  5. HALOPERIDOL [Suspect]
     Indication: LARYNGEAL CANCER
     Dosage: .75 MG, DAILY
     Route: 048
     Dates: start: 20060816, end: 20060824
  6. HALOPERIDOL [Suspect]
     Dosage: 1.5 MG, DAILY
     Route: 048
     Dates: start: 20060825, end: 20060829
  7. MORPHINE [Concomitant]
     Indication: CANCER PAIN
     Dosage: UNK, PRN
     Route: 065
     Dates: start: 20060725
  8. TEGAFUR/ GIMESTAT/ OTASTAT POTASSIUM [Suspect]
     Indication: DRUG USE FOR UNKNOWN INDICATION
     Dosage: 80 MG, DAILY
     Route: 048
     Dates: start: 20050801, end: 20060601
  9. PROTECADIN [Suspect]
     Indication: DRUG USE FOR UNKNOWN INDICATION
     Dosage: 1 TABLET, DAILY
     Route: 048
     Dates: start: 20050801, end: 20060815

REACTIONS (15)
  - BILE DUCT OBSTRUCTION [None]
  - BLOOD CHLORIDE DECREASED [None]
  - BLOOD GLUCOSE INCREASED [None]
  - BLOOD POTASSIUM INCREASED [None]
  - BLOOD SODIUM DECREASED [None]
  - CHEST PAIN [None]
  - DELIRIUM [None]
  - DEPRESSED LEVEL OF CONSCIOUSNESS [None]
  - HAEMODIALYSIS [None]
  - HEPATIC FAILURE [None]
  - HEPATITIS FULMINANT [None]
  - IMMUNODEFICIENCY [None]
  - PROTHROMBIN TIME PROLONGED [None]
  - PYREXIA [None]
  - RENAL IMPAIRMENT [None]
